FAERS Safety Report 17407164 (Version 1)
Quarter: 2020Q1

REPORT INFORMATION
  Report Type: Spontaneous
  Country: US (occurrence: US)
  Receive Date: 20200212
  Receipt Date: 20200212
  Transmission Date: 20200409
  Serious: No
  Sender: FDA-Public Use
  Company Number: US-GLAXOSMITHKLINE-US2020AMR022223

PATIENT
  Sex: Male

DRUGS (6)
  1. SALMETEROL DISKUS (SALMETEROL XINAFOATE) [Suspect]
     Active Substance: SALMETEROL XINAFOATE
     Indication: ASTHMA
     Dosage: 1 PUFF(S), QD
  2. FLUTICASONE DISKUS INHALATION POWDER [Suspect]
     Active Substance: FLUTICASONE PROPIONATE
     Indication: ASTHMA
     Dosage: 1 PUFF(S), QD
  3. SHINGRIX [Suspect]
     Active Substance: RECOMBINANT VARICELLA ZOSTER VIRUS (VZV) GLYCOPROTEIN E
     Indication: PROPHYLAXIS
     Route: 030
     Dates: start: 20191221
  4. SALMETEROL DISKUS (SALMETEROL XINAFOATE) [Suspect]
     Active Substance: SALMETEROL XINAFOATE
     Indication: BRONCHIAL HYPERREACTIVITY
  5. GLUCOSAMINE [Concomitant]
     Active Substance: GLUCOSAMINE
  6. COMBIVENT [Concomitant]
     Active Substance: ALBUTEROL SULFATE\IPRATROPIUM BROMIDE

REACTIONS (8)
  - Neuralgia [Unknown]
  - Arthralgia [Unknown]
  - Inflammation [Recovered/Resolved]
  - Peripheral swelling [Recovered/Resolved]
  - Influenza like illness [Unknown]
  - Feeling hot [Recovered/Resolved]
  - Erythema [Recovered/Resolved]
  - Pain in extremity [Recovered/Resolved]
